FAERS Safety Report 9838384 (Version 1)
Quarter: 2013Q4

REPORT INFORMATION
  Report Type: Spontaneous
  Country: US (occurrence: None)
  Receive Date: 20131206
  Receipt Date: 20131206
  Transmission Date: 20140711
  Serious: Yes (Other)
  Sender: FDA-Public Use
  Company Number: 375394

PATIENT
  Age: 20 Year
  Sex: Female
  Weight: 59 kg

DRUGS (1)
  1. NOVOLOG [Suspect]
     Indication: TYPE 1 DIABETES MELLITUS
     Dosage: SLIDING SCALE, PUMP
     Route: 058
     Dates: start: 2004

REACTIONS (1)
  - Blood glucose increased [None]
